FAERS Safety Report 4450916-5 (Version None)
Quarter: 2004Q3

REPORT INFORMATION
  Report Type: 
  Country: None (occurrence: None)
  Receive Date: 20040916
  Receipt Date: 20020102
  Transmission Date: 20050211
  Serious: Yes (Other)
  Sender: FDA-Public Use
  Company Number: US-BRISTOL-MYERS SQUIBB COMPANY-11833498

PATIENT
  Age: 39 Year
  Sex: Female

DRUGS (11)
  1. STADOL [Suspect]
     Route: 045
     Dates: start: 19930824
  2. STADOL [Suspect]
     Dosage: ROUTE: IM + IV DURATION: MORE THAN 3 YEARS
     Route: 030
  3. LORAZEPAM [Concomitant]
  4. PROMETHAZINE [Concomitant]
  5. METHOCARBAMOL [Concomitant]
  6. LODINE [Concomitant]
  7. GENAGESIC [Concomitant]
  8. FUROSEMIDE [Concomitant]
  9. CHLORAL HYDRATE [Concomitant]
  10. NIFEDIPINE [Concomitant]
  11. CARISOPRODOL [Concomitant]

REACTIONS (2)
  - DEPENDENCE [None]
  - DRUG WITHDRAWAL SYNDROME [None]
